FAERS Safety Report 23776942 (Version 2)
Quarter: 2024Q2

REPORT INFORMATION
  Report Type: Spontaneous
  Country: KR (occurrence: KR)
  Receive Date: 20240424
  Receipt Date: 20240430
  Transmission Date: 20240717
  Serious: Yes (Hospitalization)
  Sender: FDA-Public Use
  Company Number: KR-SAMSUNG BIOEPIS-SB-2024-10126

PATIENT
  Age: 69 Year
  Sex: Male
  Weight: 73 kg

DRUGS (35)
  1. TRASTUZUMAB [Suspect]
     Active Substance: TRASTUZUMAB
     Indication: Cholangiocarcinoma
     Route: 042
     Dates: start: 20240319, end: 20240319
  2. NIVOLUMAB [Suspect]
     Active Substance: NIVOLUMAB
     Indication: Cholangiocarcinoma
     Route: 042
     Dates: start: 20240319, end: 20240319
  3. GEMCITABINE [Suspect]
     Active Substance: GEMCITABINE
     Indication: Cholangiocarcinoma
     Route: 042
     Dates: start: 20240319, end: 20240319
  4. CISPLATIN [Suspect]
     Active Substance: CISPLATIN
     Indication: Cholangiocarcinoma
     Route: 042
     Dates: start: 20240319, end: 20240319
  5. NORVASC [Concomitant]
     Active Substance: AMLODIPINE BESYLATE
     Indication: Product used for unknown indication
     Route: 065
     Dates: end: 20240409
  6. CARVEDILOL [Concomitant]
     Active Substance: CARVEDILOL
     Indication: Product used for unknown indication
     Route: 065
     Dates: start: 2004, end: 20240409
  7. QUETIAPINE FUMARATE [Concomitant]
     Active Substance: QUETIAPINE FUMARATE
     Indication: Product used for unknown indication
     Route: 065
     Dates: start: 2014, end: 20240412
  8. QUETIAPINE FUMARATE [Concomitant]
     Active Substance: QUETIAPINE FUMARATE
     Route: 065
     Dates: start: 2014, end: 20240412
  9. PROPACETAMOL HYDROCHLORIDE [Concomitant]
     Active Substance: PROPACETAMOL HYDROCHLORIDE
     Indication: Diabetes mellitus
     Dosage: 50 MG/ML
     Route: 065
     Dates: start: 20240319, end: 20240320
  10. Trodon [Concomitant]
     Indication: Product used for unknown indication
     Dosage: 50 MG/ML
     Route: 065
     Dates: start: 20240318, end: 20240319
  11. LASIX [Concomitant]
     Active Substance: FUROSEMIDE
     Indication: Product used for unknown indication
     Route: 065
     Dates: start: 20240320, end: 20240410
  12. MEROPENEM [Concomitant]
     Active Substance: MEROPENEM
     Indication: Product used for unknown indication
     Route: 065
     Dates: start: 20240320, end: 20240412
  13. SK ALBUMIN [Concomitant]
     Indication: Product used for unknown indication
     Route: 065
     Dates: start: 20240316, end: 20240412
  14. MECKOOL [Concomitant]
     Indication: Prophylaxis
     Route: 065
     Dates: start: 20240319, end: 20240405
  15. GRATRIL [Concomitant]
     Indication: Prophylaxis
     Route: 065
     Dates: start: 20240319, end: 20240319
  16. GRATRIL [Concomitant]
     Route: 042
     Dates: start: 20240329, end: 20240329
  17. GRATRIL [Concomitant]
     Route: 042
     Dates: start: 20240330, end: 20240330
  18. GRATRIL [Concomitant]
     Route: 042
     Dates: start: 20240412, end: 20240412
  19. CALCIUM POLYSTYRENE SULFONATE [Concomitant]
     Active Substance: CALCIUM POLYSTYRENE SULFONATE
     Indication: Product used for unknown indication
     Route: 065
     Dates: start: 20240319, end: 20240411
  20. OXYCODONE [Concomitant]
     Active Substance: OXYCODONE\OXYCODONE HYDROCHLORIDE
     Indication: Prophylaxis
     Route: 065
     Dates: start: 20240320, end: 20240413
  21. DIFLUCAN [Concomitant]
     Active Substance: FLUCONAZOLE
     Indication: Prophylaxis
     Dosage: 0.35G/35ML
     Route: 065
     Dates: start: 20240323, end: 20240328
  22. VANCOZIN [Concomitant]
     Indication: Product used for unknown indication
     Route: 065
     Dates: start: 20240324, end: 20240329
  23. REMESTYP [Concomitant]
     Indication: Product used for unknown indication
     Dosage: 1.0 INJ
     Route: 065
     Dates: start: 20240324, end: 20240412
  24. NEUPOGEN [Concomitant]
     Active Substance: FILGRASTIM
     Indication: Prophylaxis
     Dosage: 300 ?G/0.7 M L
     Route: 065
     Dates: start: 20240326, end: 20240326
  25. Shumecton [Concomitant]
     Indication: Prophylaxis
     Route: 065
     Dates: start: 20240326, end: 20240410
  26. Samnam Loperamide [Concomitant]
     Indication: Prophylaxis
     Dosage: QID
     Route: 065
     Dates: start: 20240324, end: 20240410
  27. CALCIUM CHLORIDE\POTASSIUM CHLORIDE\SODIUM CHLORIDE\SODIUM LACTATE [Concomitant]
     Active Substance: CALCIUM CHLORIDE\POTASSIUM CHLORIDE\SODIUM CHLORIDE\SODIUM LACTATE
     Indication: Product used for unknown indication
     Route: 065
     Dates: start: 20240316, end: 20240413
  28. APREPITANT [Concomitant]
     Active Substance: APREPITANT
     Indication: Prophylaxis
     Route: 065
     Dates: start: 20240319, end: 20240319
  29. QUETIAPINE [Concomitant]
     Active Substance: QUETIAPINE
     Indication: Product used for unknown indication
     Dosage: 20 MG/20 ML
     Route: 065
     Dates: start: 20240411, end: 20240413
  30. PIPERACILLIN SODIUM\TAZOBACTAM SODIUM [Concomitant]
     Active Substance: PIPERACILLIN SODIUM\TAZOBACTAM SODIUM
     Indication: Product used for unknown indication
     Route: 065
     Dates: start: 20240410, end: 20240411
  31. MEROPENEM [Concomitant]
     Active Substance: MEROPENEM
     Indication: Product used for unknown indication
     Route: 065
     Dates: start: 20240321, end: 20240412
  32. Penzal [Concomitant]
     Indication: Product used for unknown indication
     Route: 065
     Dates: start: 20240411, end: 20240411
  33. Shinpoong Amikacin Sulfate [Concomitant]
     Indication: Product used for unknown indication
     Route: 065
     Dates: start: 20240411, end: 20240413
  34. FILGRASTIM [Concomitant]
     Active Substance: FILGRASTIM
     Indication: Prophylaxis
     Dosage: 300MCG/1.2ML
     Route: 065
     Dates: start: 20240411, end: 20240411
  35. HANA FENTANYL CITRATE [Concomitant]
     Indication: Prophylaxis
     Dosage: 500MCG/10ML
     Route: 065
     Dates: start: 20240329, end: 20240411

REACTIONS (2)
  - Septic shock [Recovered/Resolved]
  - Septic shock [Recovering/Resolving]

NARRATIVE: CASE EVENT DATE: 20240319
